FAERS Safety Report 26175035 (Version 1)
Quarter: 2025Q4

REPORT INFORMATION
  Report Type: Spontaneous
  Country: US (occurrence: US)
  Receive Date: 20251218
  Receipt Date: 20251218
  Transmission Date: 20260118
  Serious: No
  Sender: IPSEN BIOPHARMACEUTICALS, INC.
  Company Number: US-IPSEN Group, Research and Development-2025-31027

PATIENT
  Sex: Male
  Weight: 132 kg

DRUGS (11)
  1. IQIRVO [Suspect]
     Active Substance: ELAFIBRANOR
     Indication: Primary biliary cholangitis
     Route: 048
  2. VITAMINS [Concomitant]
     Active Substance: VITAMINS
  3. CENTRUM SILVER MEN [Concomitant]
  4. TUMS ULTRA [Concomitant]
     Active Substance: CALCIUM CARBONATE
     Dosage: TUMS ULTRA 400(1000) TAB CHEW
  5. EXCEDRIN TENSION HEADACHE [Concomitant]
     Active Substance: ACETAMINOPHEN\CAFFEINE
  6. FLUTICASONE PROPIONATE [Concomitant]
     Active Substance: FLUTICASONE PROPIONATE
  7. TAMSULOSIN HYDROCHLORIDE [Concomitant]
     Active Substance: TAMSULOSIN HYDROCHLORIDE
     Dosage: TAMSULOSIN HCL 0.4 MG CAPSULE
  8. URSODIOL [Concomitant]
     Active Substance: URSODIOL
     Dosage: URSODIOL 300 MG CAPSULE
  9. SIMVASTATIN [Concomitant]
     Active Substance: SIMVASTATIN
  10. METFORMIN HYDROCHLORIDE [Concomitant]
     Active Substance: METFORMIN HYDROCHLORIDE
     Dosage: METFORMIN HCL 1000 MG TABLET
  11. PIOGLITAZONE [Concomitant]
     Active Substance: PIOGLITAZONE
     Dosage: PIOGLITAZONE HCL 45 MG TABLET

REACTIONS (3)
  - Myalgia [Unknown]
  - Muscle spasms [Unknown]
  - Arthralgia [Unknown]
